FAERS Safety Report 5918786-3 (Version None)
Quarter: 2008Q4

REPORT INFORMATION
  Report Type: 
  Country: None (occurrence: None)
  Receive Date: 20081015
  Receipt Date: 20081006
  Transmission Date: 20090506
  Serious: Yes (Other)
  Sender: FDA-Public Use
  Company Number: RU-BAYER-200827677GPV

PATIENT
  Age: 39 Year
  Sex: Female

DRUGS (2)
  1. AVELOX [Suspect]
     Indication: ACUTE SINUSITIS
     Dosage: TOTAL DAILY DOSE: 400 MG  UNIT DOSE: 400 MG
     Route: 048
     Dates: start: 20080922, end: 20080924
  2. ANTIBIOTIC (UNSPECIFIED) [Concomitant]
     Indication: ACUTE SINUSITIS
     Route: 065

REACTIONS (6)
  - BLOOD PRESSURE INCREASED [None]
  - FLUSHING [None]
  - HYPERTENSIVE CRISIS [None]
  - SYNCOPE [None]
  - TACHYCARDIA [None]
  - TREMOR [None]
